FAERS Safety Report 16373005 (Version 4)
Quarter: 2019Q2

REPORT INFORMATION
  Report Type: Spontaneous
  Country: JP (occurrence: JP)
  Receive Date: 20190530
  Receipt Date: 20190619
  Transmission Date: 20190711
  Serious: Yes (Death, Other)
  Sender: FDA-Public Use
  Company Number: JP-BRISTOL-MYERS SQUIBB COMPANY-BMS-2019-053316

PATIENT
  Age: 73 Year
  Sex: Male
  Weight: 45.5 kg

DRUGS (1)
  1. OPDIVO [Suspect]
     Active Substance: NIVOLUMAB
     Indication: HEAD AND NECK CANCER
     Dosage: 136 MG (2017/8/10, 8/25, 9/14, 9/29)
     Route: 041
     Dates: start: 20170810, end: 20170929

REACTIONS (2)
  - Malignant neoplasm progression [Unknown]
  - Pneumonia bacterial [Fatal]

NARRATIVE: CASE EVENT DATE: 20171208
